FAERS Safety Report 5563615-3 (Version None)
Quarter: 2007Q4

REPORT INFORMATION
  Report Type: 
  Country: None (occurrence: None)
  Receive Date: 20071214
  Receipt Date: 20071214
  Transmission Date: 20080405
  Serious: Yes (Hospitalization)
  Sender: FDA-Public Use
  Company Number: None

PATIENT
  Age: 38 Year
  Sex: Female

DRUGS (1)
  1. IMURAN [Suspect]
     Indication: SYSTEMIC LUPUS ERYTHEMATOSUS
     Dosage: 3 TIMES A DAY
     Dates: start: 20020101, end: 20070101

REACTIONS (4)
  - DIARRHOEA [None]
  - PAIN [None]
  - PANCREATIC ENLARGEMENT [None]
  - VOMITING [None]
